FAERS Safety Report 9889344 (Version 2)
Quarter: 2014Q2

REPORT INFORMATION
  Report Type: Spontaneous
  Country: US (occurrence: US)
  Receive Date: 20140211
  Receipt Date: 20140619
  Transmission Date: 20141212
  Serious: Yes (Hospitalization, Other)
  Sender: FDA-Public Use
  Company Number: US-009507513-1402USA005030

PATIENT
  Sex: Female

DRUGS (1)
  1. NUVARING [Suspect]
     Indication: PRODUCT USED FOR UNKNOWN INDICATION
     Dosage: 1 RING FOR 3 WEEKS, THEN REMOVE FOR 1 WEEK
     Route: 067
     Dates: start: 20121031

REACTIONS (11)
  - Cardiac arrest [Recovered/Resolved]
  - Pulmonary embolism [Recovering/Resolving]
  - Vena cava filter insertion [Unknown]
  - Hypercoagulation [Unknown]
  - Deep vein thrombosis [Unknown]
  - Pneumonia [Unknown]
  - Pulmonary mass [Unknown]
  - Pyrexia [Unknown]
  - Pain in extremity [Unknown]
  - Vena cava filter removal [Unknown]
  - Anaemia [Unknown]
